FAERS Safety Report 6285474-6 (Version None)
Quarter: 2009Q3

REPORT INFORMATION
  Report Type: 
  Country: None (occurrence: None)
  Receive Date: 20090727
  Receipt Date: 20090713
  Transmission Date: 20100115
  Serious: Yes (Life-Threatening, Hospitalization, Other)
  Sender: FDA-Public Use
  Company Number: GB-MYLANLABS-2009S1012397

PATIENT
  Age: 69 None
  Sex: Female

DRUGS (7)
  1. ONDANSETRON [Suspect]
     Indication: ANTIEMETIC SUPPORTIVE CARE
     Route: 002
     Dates: start: 20090225, end: 20090225
  2. OXYCONTIN [Suspect]
     Indication: POSTOPERATIVE ANALGESIA
     Dates: start: 20090225, end: 20090226
  3. AMILORIDE HYDROCHLORIDE [Concomitant]
     Indication: DRUG USE FOR UNKNOWN INDICATION
  4. DIAZEPAM [Concomitant]
     Indication: DRUG USE FOR UNKNOWN INDICATION
  5. ORLISTAT [Concomitant]
     Indication: DRUG USE FOR UNKNOWN INDICATION
  6. PHENELZINE [Concomitant]
     Indication: DRUG USE FOR UNKNOWN INDICATION
  7. RAMIPRIL [Concomitant]
     Indication: DRUG USE FOR UNKNOWN INDICATION

REACTIONS (1)
  - SEROTONIN SYNDROME [None]
